FAERS Safety Report 16795097 (Version 1)
Quarter: 2019Q3

REPORT INFORMATION
  Report Type: Spontaneous
  Country: ES (occurrence: ES)
  Receive Date: 20190911
  Receipt Date: 20190911
  Transmission Date: 20191005
  Serious: Yes (Death, Hospitalization)
  Sender: FDA-Public Use
  Company Number: ES-MYLANLABS-2019M1084659

PATIENT
  Age: 89 Year
  Sex: Female

DRUGS (2)
  1. METAMIZOL                          /06276701/ [Interacting]
     Active Substance: METAMIZOLE
     Indication: PRODUCT USED FOR UNKNOWN INDICATION
     Dosage: 575 MILLIGRAM, Q8H
     Route: 048
     Dates: start: 20170430, end: 20180426
  2. CITALOPRAM [Suspect]
     Active Substance: CITALOPRAM HYDROBROMIDE
     Indication: PRODUCT USED FOR UNKNOWN INDICATION
     Dosage: 20 MILLIGRAM, QD, 1-0-0
     Route: 048
     Dates: start: 20170430, end: 20180426

REACTIONS (4)
  - Drug interaction [Unknown]
  - Gastrointestinal haemorrhage [Fatal]
  - Anaemia [Fatal]
  - Concomitant disease aggravated [Fatal]

NARRATIVE: CASE EVENT DATE: 20180426
